FAERS Safety Report 12143275 (Version 1)
Quarter: 2016Q1

REPORT INFORMATION
  Report Type: Report from Study
  Country: KR (occurrence: KR)
  Receive Date: 20160304
  Receipt Date: 20160304
  Transmission Date: 20160526
  Serious: Yes (Hospitalization)
  Sender: FDA-Public Use
  Company Number: KR-ALEXION-A201601321

PATIENT
  Age: 76 Year
  Sex: Male

DRUGS (2)
  1. SOLIRIS [Suspect]
     Active Substance: ECULIZUMAB
     Indication: PAROXYSMAL NOCTURNAL HAEMOGLOBINURIA
     Dosage: 2 VIALS QW
     Route: 042
     Dates: start: 20130121, end: 20130211
  2. SOLIRIS [Suspect]
     Active Substance: ECULIZUMAB
     Dosage: 3 VIALS Q2W
     Route: 042
     Dates: start: 20130218

REACTIONS (2)
  - Pyrexia [Recovered/Resolved]
  - Chills [Recovered/Resolved]

NARRATIVE: CASE EVENT DATE: 20160215
